FAERS Safety Report 11028188 (Version 2)
Quarter: 2015Q2

REPORT INFORMATION
  Report Type: Spontaneous
  Country: US (occurrence: US)
  Receive Date: 20150414
  Receipt Date: 20150610
  Transmission Date: 20150821
  Serious: No
  Sender: FDA-Public Use
  Company Number: US-TEVA-552166USA

PATIENT
  Sex: Female

DRUGS (1)
  1. QVAR [Suspect]
     Active Substance: BECLOMETHASONE DIPROPIONATE
     Indication: ASTHMA
     Route: 055

REACTIONS (4)
  - Exposure during pregnancy [Unknown]
  - Asthma [Unknown]
  - Drug ineffective [Unknown]
  - Device malfunction [Unknown]
